FAERS Safety Report 15711744 (Version 1)
Quarter: 2018Q4

REPORT INFORMATION
  Report Type: Report from Study
  Country: BR (occurrence: BR)
  Receive Date: 20181212
  Receipt Date: 20181212
  Transmission Date: 20190205
  Serious: Yes (Other)
  Sender: FDA-Public Use
  Company Number: BR-TAKEDA-2018TUS017638

PATIENT
  Age: 60 Year
  Sex: Female

DRUGS (5)
  1. LOSARTAN. [Concomitant]
     Active Substance: LOSARTAN
     Indication: HYPERTENSION
     Dosage: 50 MG, QD
     Route: 048
  2. OMEPRAZOLE. [Concomitant]
     Active Substance: OMEPRAZOLE
     Indication: GASTROOESOPHAGEAL REFLUX DISEASE
     Dosage: 20 MG, QD
     Route: 048
  3. VEDOLIZUMAB [Suspect]
     Active Substance: VEDOLIZUMAB
     Indication: COLITIS ULCERATIVE
     Dosage: UNK
     Route: 042
     Dates: start: 20180323
  4. SULFASALAZINE. [Concomitant]
     Active Substance: SULFASALAZINE
     Indication: COLITIS ULCERATIVE
     Dosage: 1000 MG, BID
     Route: 048
     Dates: start: 2017
  5. HIXIZINE [Concomitant]
     Active Substance: HYDROXYZINE HYDROCHLORIDE
     Indication: RHINITIS ALLERGIC
     Dosage: UNK

REACTIONS (7)
  - Abdominal pain [Recovered/Resolved]
  - Influenza [Recovered/Resolved]
  - Off label use [Unknown]
  - Haemorrhage [Recovering/Resolving]
  - Feeling cold [Not Recovered/Not Resolved]
  - Frequent bowel movements [Recovered/Resolved]
  - Body temperature increased [Recovered/Resolved]

NARRATIVE: CASE EVENT DATE: 20180411
